FAERS Safety Report 4660967-3 (Version None)
Quarter: 2005Q2

REPORT INFORMATION
  Report Type: 
  Country: None (occurrence: None)
  Receive Date: 20050511
  Receipt Date: 20050429
  Transmission Date: 20051028
  Serious: Yes (Hospitalization)
  Sender: FDA-Public Use
  Company Number: KII-2005-0016432

PATIENT
  Age: 15 Month
  Sex: Female

DRUGS (1)
  1. OXYCONTIN [Suspect]
     Dosage: SEE IMAGE
     Route: 048
     Dates: start: 20050320

REACTIONS (6)
  - ACCIDENTAL EXPOSURE [None]
  - GAIT DISTURBANCE [None]
  - IRRITABILITY [None]
  - MIOSIS [None]
  - RASH ERYTHEMATOUS [None]
  - SOMNOLENCE [None]
